FAERS Safety Report 7294150-2 (Version None)
Quarter: 2011Q1

REPORT INFORMATION
  Report Type: 
  Country: None (occurrence: None)
  Receive Date: 20110204
  Receipt Date: 20110125
  Transmission Date: 20110831
  Serious: Yes (Other)
  Sender: FDA-Public Use
  Company Number: 020810

PATIENT
  Sex: Female
  Weight: 76.2 kg

DRUGS (3)
  1. CARAFATE [Concomitant]
  2. PREDNISONE TAB [Concomitant]
  3. CIMZIA [Suspect]
     Indication: CROHN'S DISEASE
     Dosage: 400 MG 1X/MONTH SUBCUTANEOUS
     Route: 058
     Dates: start: 20101001

REACTIONS (11)
  - LYMPHADENOPATHY [None]
  - CONDITION AGGRAVATED [None]
  - INJECTION SITE PAIN [None]
  - DECREASED APPETITE [None]
  - WEIGHT DECREASED [None]
  - INJECTION SITE DISCHARGE [None]
  - PAIN [None]
  - OFF LABEL USE [None]
  - DIARRHOEA HAEMORRHAGIC [None]
  - NASOPHARYNGITIS [None]
  - MALAISE [None]
